FAERS Safety Report 23915944 (Version 2)
Quarter: 2025Q2

REPORT INFORMATION
  Report Type: Spontaneous
  Country: US (occurrence: US)
  Receive Date: 20240529
  Receipt Date: 20250510
  Transmission Date: 20250716
  Serious: No
  Sender: SANOFI AVENTIS
  Company Number: US-SA-SAC20240527000499

PATIENT
  Sex: Female
  Weight: 83.46 kg

DRUGS (26)
  1. DUPIXENT [Suspect]
     Active Substance: DUPILUMAB
     Indication: Asthma
     Dosage: 300 MG, QOW
     Route: 058
     Dates: start: 20220622, end: 20250326
  2. INCRUSE ELLIPTA [Suspect]
     Active Substance: UMECLIDINIUM BROMIDE
     Indication: Nasal congestion
  3. COLLAGENASE [Concomitant]
     Active Substance: COLLAGENASE CLOSTRIDIUM HISTOLYTICUM
  4. HYDROXYZINE HYDROCHLORIDE [Concomitant]
     Active Substance: HYDROXYZINE HYDROCHLORIDE
  5. OZEMPIC [Concomitant]
     Active Substance: SEMAGLUTIDE
  6. DIFLUCAN [Concomitant]
     Active Substance: FLUCONAZOLE
  7. CLINDAMYCIN HYDROCHLORIDE [Concomitant]
     Active Substance: CLINDAMYCIN HYDROCHLORIDE
  8. ACETAMINOPHEN\HYDROCODONE [Concomitant]
     Active Substance: ACETAMINOPHEN\HYDROCODONE
  9. BUDESONIDE [Concomitant]
     Active Substance: BUDESONIDE
  10. AZELASTINE HYDROCHLORIDE [Concomitant]
     Active Substance: AZELASTINE HYDROCHLORIDE
  11. NYSTATIN [Concomitant]
     Active Substance: NYSTATIN
  12. ALBUTEROL\IPRATROPIUM [Concomitant]
     Active Substance: ALBUTEROL\IPRATROPIUM
  13. ADVIL SINUS CONGESTION AND PAIN [Concomitant]
     Active Substance: IBUPROFEN\PHENYLEPHRINE HYDROCHLORIDE
  14. MUCINEX [Concomitant]
     Active Substance: GUAIFENESIN
  15. CYANOCOBALAMIN [Concomitant]
     Active Substance: CYANOCOBALAMIN
  16. POTASSIUM [Concomitant]
     Active Substance: POTASSIUM
  17. ASCORBIC ACID [Concomitant]
     Active Substance: ASCORBIC ACID
  18. FLONASE ALLERGY RELIEF [Concomitant]
     Active Substance: FLUTICASONE PROPIONATE
  19. CLONAZEPAM [Concomitant]
     Active Substance: CLONAZEPAM
  20. PROZAC [Concomitant]
     Active Substance: FLUOXETINE HYDROCHLORIDE
  21. TOPROL XL [Concomitant]
     Active Substance: METOPROLOL SUCCINATE
  22. IBUPROFEN [Concomitant]
     Active Substance: IBUPROFEN
  23. ATROVENT HFA [Concomitant]
     Active Substance: IPRATROPIUM BROMIDE
  24. SINGULAIR [Concomitant]
     Active Substance: MONTELUKAST SODIUM
  25. MAGNESIUM [Concomitant]
     Active Substance: MAGNESIUM
  26. VACUNA PFIZER-BIONTECH COVID-19 [Concomitant]
     Indication: Immunisation

REACTIONS (5)
  - Nasal congestion [Unknown]
  - Dyspnoea [Unknown]
  - Upper respiratory tract infection [Unknown]
  - Asthma [Unknown]
  - Product dose omission in error [Unknown]
